FAERS Safety Report 16879325 (Version 2)
Quarter: 2019Q4

REPORT INFORMATION
  Report Type: Spontaneous
  Country: NL (occurrence: NL)
  Receive Date: 20191003
  Receipt Date: 20191028
  Transmission Date: 20200122
  Serious: Yes (Life-Threatening, Other)
  Sender: FDA-Public Use
  Company Number: NL-STRIDES ARCOLAB LIMITED-2019SP009385

PATIENT
  Age: 52 Year
  Sex: Female

DRUGS (6)
  1. PREDNISOLONE. [Suspect]
     Active Substance: PREDNISOLONE
     Indication: IMMUNOSUPPRESSANT DRUG THERAPY
  2. PREDNISOLONE. [Suspect]
     Active Substance: PREDNISOLONE
     Indication: LUNG TRANSPLANT
     Dosage: 7.5 MG, ONCE DAILY
     Route: 065
     Dates: start: 2011
  3. MYCOPHENOLATE MOFETIL. [Suspect]
     Active Substance: MYCOPHENOLATE MOFETIL
     Indication: LUNG TRANSPLANT
     Dosage: 750 MG, TWICE DAILY
     Route: 065
     Dates: start: 2011
  4. SIROLIMUS. [Suspect]
     Active Substance: SIROLIMUS
     Indication: LUNG TRANSPLANT
     Dosage: 2 MG, ONCE DAILY
     Route: 065
     Dates: start: 2011
  5. SIROLIMUS. [Suspect]
     Active Substance: SIROLIMUS
     Indication: IMMUNOSUPPRESSANT DRUG THERAPY
  6. MYCOPHENOLATE MOFETIL. [Suspect]
     Active Substance: MYCOPHENOLATE MOFETIL
     Indication: IMMUNOSUPPRESSANT DRUG THERAPY
     Dosage: 500 MG, TWICE DAILY (DOSE LOWERED)
     Route: 065
     Dates: start: 2011

REACTIONS (4)
  - Hepatitis E [Not Recovered/Not Resolved]
  - Fibrosis [Unknown]
  - Hepatic cirrhosis [Unknown]
  - Chronic hepatitis [Not Recovered/Not Resolved]

NARRATIVE: CASE EVENT DATE: 201609
